FAERS Safety Report 6756275-7 (Version None)
Quarter: 2010Q2

REPORT INFORMATION
  Report Type: 
  Country: None (occurrence: None)
  Receive Date: 20100604
  Receipt Date: 20100525
  Transmission Date: 20101027
  Serious: Yes (Other)
  Sender: FDA-Public Use
  Company Number: US-ROCHE-701352

PATIENT
  Sex: Female
  Weight: 61.2 kg

DRUGS (4)
  1. BONIVA [Suspect]
     Indication: OSTEOPOROSIS
     Route: 048
     Dates: start: 20050729, end: 20100416
  2. FOSAMAX [Suspect]
     Indication: OSTEOPOROSIS
     Dosage: DOSE: 70
     Route: 048
     Dates: start: 19971027, end: 20050729
  3. LEVOTHYROXINE SODIUM [Concomitant]
     Dosage: DRUG REPORTED AS LEVOTHYROXINE
  4. LOTREL [Concomitant]
     Dosage: DOSE: 5/10 DAILY
     Route: 048
     Dates: start: 19990101

REACTIONS (1)
  - FEMUR FRACTURE [None]
